FAERS Safety Report 7915174-5 (Version None)
Quarter: 2011Q4

REPORT INFORMATION
  Report Type: 
  Country: None (occurrence: None)
  Receive Date: 20111115
  Receipt Date: 20111108
  Transmission Date: 20120403
  Serious: Yes (Life-Threatening, Other)
  Sender: FDA-Public Use
  Company Number: GB-UCBSA-044344

PATIENT
  Age: 64 Year
  Sex: Male

DRUGS (8)
  1. HYDROXYCHLOROQUINE SULFATE [Concomitant]
     Indication: RHEUMATOID ARTHRITIS
     Dosage: 5 DAYS A WEEK
     Route: 048
  2. CIMZIA [Suspect]
     Indication: RHEUMATOID ARTHRITIS
     Route: 058
     Dates: start: 20100901, end: 20110901
  3. METHOTREXATE [Concomitant]
     Indication: RHEUMATOID ARTHRITIS
     Route: 048
     Dates: start: 20080701, end: 20110101
  4. FELODIPINE [Concomitant]
     Indication: HYPERTENSION
     Route: 048
  5. BENDROFLUMETHIAZIDE [Concomitant]
     Indication: HYPERTENSION
  6. FOLIC ACID [Concomitant]
     Indication: RHEUMATOID ARTHRITIS
     Route: 048
     Dates: start: 20080701
  7. IRBESARTAN [Concomitant]
     Indication: HYPERTENSION
     Route: 048
  8. PLACEBO/ATORVASTATIN [Concomitant]
     Indication: RHEUMATOID ARTHRITIS

REACTIONS (1)
  - BRONCHIAL CARCINOMA [None]
